FAERS Safety Report 10192513 (Version 2)
Quarter: 2014Q2

REPORT INFORMATION
  Report Type: Spontaneous
  Country: US (occurrence: US)
  Receive Date: 20140523
  Receipt Date: 20140606
  Transmission Date: 20141212
  Serious: Yes (Hospitalization)
  Sender: FDA-Public Use
  Company Number: US-LUNDBECK-DKLU1100183

PATIENT
  Age: 19 Year
  Sex: Male

DRUGS (2)
  1. SABRIL     (TABLET) [Suspect]
     Indication: INFANTILE SPASMS
     Dates: start: 20120208
  2. SABRIL     (TABLET) [Suspect]
     Route: 048
     Dates: start: 20120305

REACTIONS (1)
  - Pneumonia [Unknown]
